FAERS Safety Report 9664752 (Version 1)
Quarter: 2013Q4

REPORT INFORMATION
  Report Type: Spontaneous
  Country: US (occurrence: US)
  Receive Date: 20131101
  Receipt Date: 20131101
  Transmission Date: 20140711
  Serious: Yes (Hospitalization)
  Sender: FDA-Public Use
  Company Number: US-PFIZER INC-2013309197

PATIENT
  Age: 41 Year
  Sex: Female

DRUGS (1)
  1. CALAN SR [Suspect]
     Dosage: 30 TABLETS OF 240 MG

REACTIONS (6)
  - Intentional overdose [Recovered/Resolved]
  - Gastrointestinal necrosis [Recovered/Resolved]
  - Bradycardia [Recovered/Resolved]
  - Hypotension [Recovered/Resolved]
  - Atrioventricular block complete [Recovered/Resolved]
  - Depressed level of consciousness [Recovered/Resolved]
